FAERS Safety Report 7634121-7 (Version None)
Quarter: 2011Q3

REPORT INFORMATION
  Report Type: 
  Country: None (occurrence: None)
  Receive Date: 20110725
  Receipt Date: 20110715
  Transmission Date: 20111222
  Serious: Yes (Other)
  Sender: FDA-Public Use
  Company Number: GB-ASTRAZENECA-2011SE37851

PATIENT
  Age: 49 Year
  Sex: Female
  Weight: 61.2 kg

DRUGS (4)
  1. TOLTERODINE TARTRATE [Concomitant]
     Indication: BLADDER DISORDER
     Route: 048
     Dates: start: 20110620
  2. ZOLADEX [Suspect]
     Indication: BREAST CANCER
     Route: 058
     Dates: start: 20100601
  3. FLUOXETINE HYDROCHLORIDE [Concomitant]
     Indication: TOXICITY TO VARIOUS AGENTS
     Route: 048
     Dates: start: 20110620
  4. EXEMESTANE [Concomitant]
     Indication: BREAST CANCER
     Route: 048
     Dates: start: 20110620

REACTIONS (1)
  - OESTRADIOL INCREASED [None]
